FAERS Safety Report 17469424 (Version 1)
Quarter: 2020Q1

REPORT INFORMATION
  Report Type: Spontaneous
  Country: GB (occurrence: GB)
  Receive Date: 20200227
  Receipt Date: 20200227
  Transmission Date: 20200409
  Serious: Yes (Hospitalization, Congenital Anomaly, Other)
  Sender: FDA-Public Use
  Company Number: GB-MYLANLABS-2020M1021969

PATIENT

DRUGS (10)
  1. FLUOXETINE [Suspect]
     Active Substance: FLUOXETINE HYDROCHLORIDE
     Dosage: 20 MILLIGRAM, QD (REDUCED TO 20MG DAILY WHEN PREGNANCY CONFIRMED)
     Route: 064
     Dates: start: 20180816
  2. PROPRANOLOL [Suspect]
     Active Substance: PROPRANOLOL HYDROCHLORIDE
     Indication: ANXIETY
     Dosage: 120 MILLIGRAM, QD (AS NECESSARY)
     Route: 064
     Dates: start: 20150416
  3. FERROUS FUMARATE [Concomitant]
     Active Substance: FERROUS FUMARATE
     Dosage: 630 MILLIGRAM, QD
     Route: 064
     Dates: start: 20180816
  4. PROPRANOLOL [Suspect]
     Active Substance: PROPRANOLOL HYDROCHLORIDE
     Dosage: 40 MILLIGRAM, QD (REDUCED TO 40MG DAILY WHEN PREGNANCY CONFIRMED, 1 MONTH SUPPLY)
     Route: 064
     Dates: start: 20180816
  5. PREGNACARE ORIGINAL                /09637101/ [Concomitant]
     Dosage: UNK
     Route: 064
     Dates: start: 20180810
  6. FLUOXETINE [Suspect]
     Active Substance: FLUOXETINE HYDROCHLORIDE
     Indication: ANXIETY
     Dosage: 60 MILLIGRAM, QD (60MG DAILY, REDUCED TO 20MG DAILY WHEN PREGNANCY CONFIRMED)
     Route: 064
     Dates: start: 20150416
  7. FERROUS FUMARATE [Concomitant]
     Active Substance: FERROUS FUMARATE
     Dosage: 915 MILLIGRAM, QD
     Route: 064
     Dates: start: 20190124
  8. COLECALCIFEROL [Concomitant]
     Active Substance: CHOLECALCIFEROL
     Dosage: 800 INTERNATIONAL UNIT, QD
     Route: 064
  9. FOLIC ACID. [Concomitant]
     Active Substance: FOLIC ACID
     Dosage: 5 MILLIGRAM, QD
     Route: 064
  10. INFLUENZA VIRUS [Concomitant]
     Active Substance: INFLUENZA VIRUS VACCINE
     Dosage: UNK
     Route: 064
     Dates: start: 20181213, end: 20181213

REACTIONS (3)
  - Right aortic arch [Not Recovered/Not Resolved]
  - Fallot^s tetralogy [Not Recovered/Not Resolved]
  - Foetal exposure during pregnancy [Recovered/Resolved]

NARRATIVE: CASE EVENT DATE: 20181105
